FAERS Safety Report 21619384 (Version 1)
Quarter: 2022Q4

REPORT INFORMATION
  Report Type: Report from Study
  Country: BR (occurrence: BR)
  Receive Date: 20221120
  Receipt Date: 20221120
  Transmission Date: 20230113
  Serious: Yes (Death, Other)
  Sender: FDA-Public Use
  Company Number: BR-002147023-NVSC2022BR260454

PATIENT
  Sex: Male

DRUGS (1)
  1. TASIGNA [Suspect]
     Active Substance: NILOTINIB
     Indication: Chronic myeloid leukaemia
     Dosage: UNK
     Route: 065

REACTIONS (5)
  - Death [Fatal]
  - Renal failure [Unknown]
  - Pulmonary oedema [Unknown]
  - Cardiac arrest [Unknown]
  - COVID-19 [Unknown]
